FAERS Safety Report 6642009-3 (Version None)
Quarter: 2010Q1

REPORT INFORMATION
  Report Type: 
  Country: None (occurrence: None)
  Receive Date: 20100316
  Receipt Date: 20100301
  Transmission Date: 20100710
  Serious: Yes (Death, Hospitalization)
  Sender: FDA-Public Use
  Company Number: KV201000017

PATIENT
  Age: 53 Year
  Sex: Female
  Weight: 81.6 kg

DRUGS (15)
  1. MORPHINE SULFATE ER (MORPHINE SULFATE) SLOW RELEASE TABLET, 60MG [Suspect]
     Indication: PAIN
     Dosage: 60 MG, QD, ORAL
     Route: 048
  2. MORPHINE SULFATE ER (MORPHINE SULFATE) SLOW RELEASE TABLET, 15MG [Suspect]
     Dosage: 30 MG, HS, ORAL
     Route: 048
  3. FLEXERIL /00428402/ (CYCLOBENZAPRINE HYDROCHLORIDE) [Concomitant]
  4. DESYREL [Concomitant]
  5. LIPITOR [Concomitant]
  6. PREVACID [Concomitant]
  7. VALIUM [Concomitant]
  8. NEURONTIN [Concomitant]
  9. TOPAMAX [Concomitant]
  10. BACLOFEN [Concomitant]
  11. PREMARIN [Concomitant]
  12. DIPHEN/ATROPINE (DIPHEN/TROPINE) [Concomitant]
  13. KLOR-CON [Concomitant]
  14. FUROSEMIDE [Concomitant]
  15. FLUTICASONE PROPIONATE [Concomitant]

REACTIONS (11)
  - CONDITION AGGRAVATED [None]
  - DIZZINESS [None]
  - HYPOAESTHESIA [None]
  - LOSS OF CONSCIOUSNESS [None]
  - MIGRAINE [None]
  - MULTIPLE SCLEROSIS [None]
  - PHOTOPHOBIA [None]
  - RESPIRATORY FAILURE [None]
  - SEDATION [None]
  - SELF-MEDICATION [None]
  - UNRESPONSIVE TO STIMULI [None]
